FAERS Safety Report 6126332-7 (Version None)
Quarter: 2009Q1

REPORT INFORMATION
  Report Type: 
  Country: None (occurrence: None)
  Receive Date: 20090320
  Receipt Date: 20090312
  Transmission Date: 20090719
  Serious: Yes (Hospitalization)
  Sender: FDA-Public Use
  Company Number: US-ELI_LILLY_AND_COMPANY-US200903003048

PATIENT
  Sex: Male

DRUGS (2)
  1. HUMULIN 70/30 [Suspect]
  2. LORTAB [Concomitant]

REACTIONS (7)
  - DIARRHOEA [None]
  - DYSPHONIA [None]
  - LARYNX IRRITATION [None]
  - LIGAMENT INJURY [None]
  - MALAISE [None]
  - MUSCULOSKELETAL PAIN [None]
  - VOMITING [None]
